FAERS Safety Report 6521237-1 (Version None)
Quarter: 2009Q4

REPORT INFORMATION
  Report Type: 
  Country: None (occurrence: None)
  Receive Date: 20091230
  Receipt Date: 20091221
  Transmission Date: 20100525
  Serious: Yes (Hospitalization)
  Sender: FDA-Public Use
  Company Number: US-BIOGENIDEC-2009BI038579

PATIENT
  Sex: Female
  Weight: 72 kg

DRUGS (4)
  1. TYSABRI [Suspect]
     Indication: MULTIPLE SCLEROSIS
     Route: 042
     Dates: start: 20080225, end: 20090505
  2. TYSABRI [Suspect]
     Route: 042
     Dates: start: 20090923
  3. KEPPRA [Concomitant]
     Indication: CONVULSION
  4. KEPPRA [Concomitant]

REACTIONS (7)
  - ASTHENIA [None]
  - CONVULSION [None]
  - FALL [None]
  - FATIGUE [None]
  - PAIN [None]
  - UPPER LIMB FRACTURE [None]
  - VISUAL ACUITY REDUCED [None]
